FAERS Safety Report 10779990 (Version 1)
Quarter: 2015Q1

REPORT INFORMATION
  Report Type: Spontaneous
  Country: US (occurrence: None)
  Receive Date: 20150209
  Receipt Date: 20150209
  Transmission Date: 20150721
  Serious: No
  Sender: FDA-Public Use
  Company Number: None

PATIENT
  Age: 28 Year
  Sex: Female

DRUGS (6)
  1. XANAX [Concomitant]
     Active Substance: ALPRAZOLAM
  2. BUPROPION XL [Concomitant]
     Active Substance: BUPROPION
  3. VANLAFAXINE HC1 [Concomitant]
  4. ZOLPIDEM [Concomitant]
     Active Substance: ZOLPIDEM\ZOLPIDEM TARTRATE
  5. TIZANIDINE (TIZANIDINE) [Suspect]
     Active Substance: TIZANIDINE
     Dosage: 3 TABLET QHS/BEDTIME ORAL
     Route: 048
     Dates: start: 20150120, end: 20150204
  6. PERCOCET [Concomitant]
     Active Substance: ACETAMINOPHEN\OXYCODONE HYDROCHLORIDE

REACTIONS (2)
  - Insomnia [None]
  - Drug ineffective [None]

NARRATIVE: CASE EVENT DATE: 20150205
